FAERS Safety Report 22227678 (Version 3)
Quarter: 2024Q4

REPORT INFORMATION
  Report Type: Spontaneous
  Country: US (occurrence: US)
  Receive Date: 20230419
  Receipt Date: 20241011
  Transmission Date: 20250114
  Serious: No
  Sender: GLAXOSMITHKLINE
  Company Number: US-GSK-US2023AMR052300

PATIENT
  Sex: Male

DRUGS (2)
  1. NUCALA [Suspect]
     Active Substance: MEPOLIZUMAB
     Indication: Product used for unknown indication
     Dosage: 100 MG, Q4W
     Route: 058
     Dates: start: 2022
  2. NUCALA [Suspect]
     Active Substance: MEPOLIZUMAB
     Dosage: 300 MG, Q4W
     Route: 058
     Dates: start: 2022

REACTIONS (6)
  - Arthralgia [Unknown]
  - Wrong technique in device usage process [Unknown]
  - Drug ineffective [Unknown]
  - Incorrect dose administered [Unknown]
  - Product complaint [Unknown]
  - Off label use [Unknown]

NARRATIVE: CASE EVENT DATE: 20220101
